FAERS Safety Report 17121993 (Version 1)
Quarter: 2019Q4

REPORT INFORMATION
  Report Type: Spontaneous
  Country: US (occurrence: US)
  Receive Date: 20191206
  Receipt Date: 20191206
  Transmission Date: 20200122
  Serious: No
  Sender: FDA-Public Use
  Company Number: US-PFIZER INC-2019525262

PATIENT
  Sex: Female

DRUGS (2)
  1. PEPCID [Suspect]
     Active Substance: FAMOTIDINE
     Indication: GASTRIC DISORDER
     Dosage: 40 MG, UNK
  2. PANTOPRAZOLE [Suspect]
     Active Substance: PANTOPRAZOLE
     Indication: GASTRIC DISORDER
     Dosage: UNK

REACTIONS (1)
  - Drug ineffective [Unknown]
